FAERS Safety Report 5979354-0 (Version None)
Quarter: 2008Q4

REPORT INFORMATION
  Report Type: 
  Country: None (occurrence: None)
  Receive Date: 20081204
  Receipt Date: 20081125
  Transmission Date: 20090506
  Serious: Yes (Death)
  Sender: FDA-Public Use
  Company Number: US-ABBOTT-08P-163-0489733-00

PATIENT
  Sex: Male

DRUGS (2)
  1. VICODIN ES [Suspect]
     Indication: PROCEDURAL PAIN
  2. OXYCOCET [Suspect]
     Indication: ANALGESIA

REACTIONS (2)
  - DRUG TOXICITY [None]
  - OVERDOSE [None]
